FAERS Safety Report 11076761 (Version 70)
Quarter: 2018Q3

REPORT INFORMATION
  Report Type: Report from Study
  Country: US (occurrence: US)
  Receive Date: 20150429
  Receipt Date: 20180925
  Transmission Date: 20181010
  Serious: Yes (Hospitalization, Other)
  Sender: FDA-Public Use
  Company Number: US-SA-2015SA051540

PATIENT
  Age: 32 Year
  Sex: Male
  Weight: 109.76 kg

DRUGS (7)
  1. ALEMTUZUMAB [Suspect]
     Active Substance: ALEMTUZUMAB
     Dosage: 12 MG,QD
     Route: 041
     Dates: start: 20150413, end: 20150417
  2. ALEMTUZUMAB [Suspect]
     Active Substance: ALEMTUZUMAB
     Dosage: 12 MG,QD
     Route: 041
     Dates: start: 20160606, end: 20160606
  3. ALEMTUZUMAB [Suspect]
     Active Substance: ALEMTUZUMAB
     Dosage: 12 MG,QD
     Route: 041
     Dates: start: 20160602, end: 20160603
  4. ACICLOVIR [Suspect]
     Active Substance: ACYCLOVIR
     Dosage: UNK UNK,UNK
     Route: 065
  5. CETIRIZINE HYDROCHLORIDE. [Suspect]
     Active Substance: CETIRIZINE HYDROCHLORIDE
     Dosage: UNK UNK,UNK
     Route: 065
  6. NEUPRO [Concomitant]
     Active Substance: ROTIGOTINE
     Indication: RESTLESS LEGS SYNDROME
     Dosage: UNK
  7. ADDERALL [Concomitant]
     Active Substance: AMPHETAMINE ASPARTATE\AMPHETAMINE SULFATE\DEXTROAMPHETAMINE SACCHARATE\DEXTROAMPHETAMINE SULFATE
     Indication: FATIGUE
     Dosage: UNK

REACTIONS (132)
  - Renal failure [Recovered/Resolved]
  - Delirium [Recovered/Resolved]
  - Radial nerve compression [Unknown]
  - Lip injury [Unknown]
  - Rheumatoid arthritis [Not Recovered/Not Resolved]
  - Joint injury [Unknown]
  - Skin lesion [Not Recovered/Not Resolved]
  - Feeling cold [Recovered/Resolved]
  - Pharyngeal oedema [Unknown]
  - Faeces discoloured [Recovering/Resolving]
  - Hypersomnia [Recovering/Resolving]
  - Ill-defined disorder [Unknown]
  - Hypothyroidism [Not Recovered/Not Resolved]
  - Body tinea [Not Recovered/Not Resolved]
  - Pain [Recovered/Resolved]
  - Stress [Recovered/Resolved]
  - Cold sweat [Unknown]
  - Blister [Not Recovered/Not Resolved]
  - Tremor [Recovered/Resolved]
  - Contusion [Not Recovered/Not Resolved]
  - Chest injury [Not Recovered/Not Resolved]
  - Fluid overload [Unknown]
  - Insomnia [Not Recovered/Not Resolved]
  - Limb injury [Unknown]
  - Thirst [Unknown]
  - Lymphadenopathy [Unknown]
  - Discomfort [Unknown]
  - Diarrhoea [Not Recovered/Not Resolved]
  - Streptococcal infection [Recovered/Resolved]
  - Sinusitis [Unknown]
  - Sunburn [Unknown]
  - Fall [Unknown]
  - Weight increased [Not Recovered/Not Resolved]
  - Hypoaesthesia [Recovering/Resolving]
  - Arthralgia [Not Recovered/Not Resolved]
  - Vomiting [Unknown]
  - Oesophageal discomfort [Unknown]
  - Neutrophil count increased [Unknown]
  - Rash erythematous [Unknown]
  - Erythema [Not Recovered/Not Resolved]
  - Feeling guilty [Recovered/Resolved]
  - Eye disorder [Unknown]
  - Multiple sclerosis relapse [Not Recovered/Not Resolved]
  - Eye pain [Not Recovered/Not Resolved]
  - Skin abrasion [Not Recovered/Not Resolved]
  - Ligament operation [Unknown]
  - Feeling hot [Recovered/Resolved]
  - Hypoaesthesia eye [Recovering/Resolving]
  - Malaise [Not Recovered/Not Resolved]
  - Oedema [Recovered/Resolved]
  - Bowel movement irregularity [Recovered/Resolved]
  - Abnormal faeces [Recovering/Resolving]
  - Miliaria [Unknown]
  - Balance disorder [Recovering/Resolving]
  - Dysphagia [Unknown]
  - Mood altered [Unknown]
  - Peripheral swelling [Unknown]
  - Abdominal discomfort [Recovered/Resolved]
  - Eye swelling [Recovering/Resolving]
  - Livedo reticularis [Not Recovered/Not Resolved]
  - Pollakiuria [Recovered/Resolved]
  - Oropharyngeal pain [Not Recovered/Not Resolved]
  - Lymphangitis [Recovered/Resolved]
  - Bacterial test [Unknown]
  - Feeling abnormal [Not Recovered/Not Resolved]
  - Palpitations [Not Recovered/Not Resolved]
  - Paraesthesia [Unknown]
  - Limb discomfort [Unknown]
  - Chills [Recovered/Resolved]
  - Heart rate decreased [Unknown]
  - Infusion site swelling [Unknown]
  - Pharyngitis streptococcal [Recovering/Resolving]
  - Bladder disorder [Unknown]
  - Emotional disorder [Recovering/Resolving]
  - Arthropod sting [Recovering/Resolving]
  - Epicondylitis [Not Recovered/Not Resolved]
  - Arthropathy [Unknown]
  - Tendonitis [Not Recovered/Not Resolved]
  - Blood thyroid stimulating hormone abnormal [Not Recovered/Not Resolved]
  - Lymphocyte count decreased [Not Recovered/Not Resolved]
  - Laryngeal oedema [Recovered/Resolved]
  - Dysphonia [Not Recovered/Not Resolved]
  - Urinary retention [Not Recovered/Not Resolved]
  - White blood cells urine positive [Unknown]
  - Visual impairment [Recovering/Resolving]
  - Laboratory test abnormal [Not Recovered/Not Resolved]
  - Urinary tract infection [Not Recovered/Not Resolved]
  - White blood cell count decreased [Not Recovered/Not Resolved]
  - Dyspnoea [Recovered/Resolved]
  - Photosensitivity reaction [Unknown]
  - Somnolence [Recovered/Resolved]
  - Red blood cell sedimentation rate decreased [Not Recovered/Not Resolved]
  - Skin discolouration [Not Recovered/Not Resolved]
  - Nausea [Not Recovered/Not Resolved]
  - Fall [Not Recovered/Not Resolved]
  - Face injury [Unknown]
  - Hypopnoea [Unknown]
  - Secretion discharge [Unknown]
  - Abdominal rigidity [Unknown]
  - Tarsal tunnel syndrome [Unknown]
  - Tearfulness [Unknown]
  - Chest pain [Unknown]
  - Influenza [Recovering/Resolving]
  - Food poisoning [Unknown]
  - Hunger [Unknown]
  - Tooth fracture [Unknown]
  - Skin abrasion [Unknown]
  - Eosinophil count increased [Not Recovered/Not Resolved]
  - Feeling cold [Not Recovered/Not Resolved]
  - Heart rate increased [Recovering/Resolving]
  - Infection [Unknown]
  - Pain [Not Recovered/Not Resolved]
  - Fatigue [Not Recovered/Not Resolved]
  - Weight increased [Recovered/Resolved]
  - Pyrexia [Recovered/Resolved]
  - Painful respiration [Unknown]
  - Arthralgia [Recovering/Resolving]
  - Lung disorder [Not Recovered/Not Resolved]
  - Dysuria [Recovered/Resolved]
  - Urine abnormality [Recovered/Resolved]
  - Skin warm [Unknown]
  - Somnambulism [Recovering/Resolving]
  - Personality disorder [Unknown]
  - Temperature intolerance [Recovering/Resolving]
  - Pyrexia [Recovering/Resolving]
  - CD4 lymphocytes decreased [Unknown]
  - Rash [Recovered/Resolved]
  - Anxiety [Recovering/Resolving]
  - Ligament injury [Not Recovered/Not Resolved]
  - Ligament rupture [Recovered/Resolved]
  - Hypersensitivity [Recovered/Resolved]
  - Blood thyroid stimulating hormone increased [Not Recovered/Not Resolved]

NARRATIVE: CASE EVENT DATE: 2015
